FAERS Safety Report 7243174-X (Version None)
Quarter: 2010Q4

REPORT INFORMATION
  Report Type: 
  Country: None (occurrence: None)
  Receive Date: 20101130
  Receipt Date: 20091014
  Transmission Date: 20110411
  Serious: Yes (Hospitalization)
  Sender: FDA-Public Use
  Company Number: 2009SP030531

PATIENT
  Age: 46 Year
  Sex: Female
  Weight: 68.0396 kg

DRUGS (1)
  1. NUVARING [Suspect]
     Indication: PRODUCT USED FOR UNKNOWN INDICATION
     Dates: start: 20050601

REACTIONS (3)
  - CAROTID ARTERY OCCLUSION [None]
  - CEREBRAL INFARCTION [None]
  - SINUS BRADYCARDIA [None]
